FAERS Safety Report 13515502 (Version 1)
Quarter: 2017Q2

REPORT INFORMATION
  Report Type: Spontaneous
  Country: IT (occurrence: IT)
  Receive Date: 20170504
  Receipt Date: 20170504
  Transmission Date: 20170830
  Serious: Yes (Hospitalization, Other)
  Sender: FDA-Public Use
  Company Number: IT-BAYER-2017-079048

PATIENT
  Age: 56 Year
  Sex: Male

DRUGS (2)
  1. REGORAFENIB [Suspect]
     Active Substance: REGORAFENIB
     Indication: COLORECTAL CANCER METASTATIC
     Dosage: DAILY DOSE 80 MG, EVERY 3 WEEKS OF A 4 WEEK CYCLE
     Dates: start: 20160124, end: 20160131
  2. REGORAFENIB [Suspect]
     Active Substance: REGORAFENIB
     Indication: COLORECTAL CANCER METASTATIC
     Dosage: DAILY DOSE 160 MG, EVERY 3 WEEKS OF A 4 WEEK CYCLE
     Dates: start: 20160107, end: 20160119

REACTIONS (6)
  - Disorientation [Recovered/Resolved]
  - Slow speech [Recovered/Resolved]
  - Motor dysfunction [Recovered/Resolved]
  - Hyperammonaemic encephalopathy [Recovered/Resolved]
  - Confusional state [Recovered/Resolved]
  - Hyperammonaemic encephalopathy [Recovered/Resolved]

NARRATIVE: CASE EVENT DATE: 20160109
